FAERS Safety Report 13393352 (Version 1)
Quarter: 2017Q1

REPORT INFORMATION
  Report Type: Spontaneous
  Country: BR (occurrence: BR)
  Receive Date: 20170331
  Receipt Date: 20170331
  Transmission Date: 20170429
  Serious: Yes (Other)
  Sender: FDA-Public Use
  Company Number: BR-SA-2017SA052098

PATIENT
  Sex: Female

DRUGS (1)
  1. LANTUS [Suspect]
     Active Substance: INSULIN GLARGINE
     Route: 065

REACTIONS (3)
  - Blindness [Unknown]
  - Malaise [Unknown]
  - Incorrect dose administered [Unknown]

NARRATIVE: CASE EVENT DATE: 201703
